FAERS Safety Report 12404532 (Version 1)
Quarter: 2016Q2

REPORT INFORMATION
  Report Type: Spontaneous
  Country: JP (occurrence: JP)
  Receive Date: 20160525
  Receipt Date: 20160525
  Transmission Date: 20160815
  Serious: Yes (Other)
  Sender: FDA-Public Use
  Company Number: PHJP2016JP013407

PATIENT
  Age: 77 Year
  Sex: Male

DRUGS (6)
  1. PREDNISOLONE. [Concomitant]
     Active Substance: PREDNISOLONE
     Dosage: UNK
     Route: 065
     Dates: end: 20151112
  2. ELTROMBOPAG [Suspect]
     Active Substance: ELTROMBOPAG
     Dosage: 25 MG, QD
     Route: 048
     Dates: start: 20130708, end: 20130722
  3. ELTROMBOPAG [Suspect]
     Active Substance: ELTROMBOPAG
     Indication: IMMUNE THROMBOCYTOPENIC PURPURA
     Dosage: 12.5 MG, QD
     Route: 048
     Dates: start: 20130701, end: 20130707
  4. ELTROMBOPAG [Suspect]
     Active Substance: ELTROMBOPAG
     Dosage: 37.5 MG, QD
     Route: 048
     Dates: start: 20130723
  5. PREDNISOLONE. [Concomitant]
     Active Substance: PREDNISOLONE
     Indication: PRODUCT USED FOR UNKNOWN INDICATION
     Dosage: 40 MG, QD
     Route: 065
     Dates: start: 20130508
  6. PREDNISOLONE. [Concomitant]
     Active Substance: PREDNISOLONE
     Dosage: 10 MG, QD
     Route: 065
     Dates: start: 20130710

REACTIONS (1)
  - Cerebellar infarction [Unknown]

NARRATIVE: CASE EVENT DATE: 201603
